FAERS Safety Report 12685244 (Version 1)
Quarter: 2016Q3

REPORT INFORMATION
  Report Type: Report from Study
  Country: CN (occurrence: CN)
  Receive Date: 20160825
  Receipt Date: 20160825
  Transmission Date: 20161109
  Serious: Yes (Hospitalization)
  Sender: FDA-Public Use
  Company Number: CN-ELI_LILLY_AND_COMPANY-CN201608007873

PATIENT
  Sex: Female

DRUGS (4)
  1. INSULIN, HUMAN [Suspect]
     Active Substance: INSULIN HUMAN
     Indication: DIABETES MELLITUS
     Dosage: 7 U, EACH MORNING
     Route: 058
     Dates: start: 201607
  2. INSULIN, HUMAN [Suspect]
     Active Substance: INSULIN HUMAN
     Indication: DIABETES MELLITUS
     Dosage: 11 U, EACH EVENING
     Route: 058
     Dates: start: 201607
  3. INSULIN, HUMAN [Suspect]
     Active Substance: INSULIN HUMAN
     Dosage: 6 U, QD
     Route: 058
     Dates: start: 201607
  4. INSULIN, HUMAN [Suspect]
     Active Substance: INSULIN HUMAN
     Dosage: 9 U, EACH EVENING
     Route: 058
     Dates: start: 201607

REACTIONS (1)
  - Blood glucose fluctuation [Unknown]
